FAERS Safety Report 4346143-2 (Version None)
Quarter: 2004Q1

REPORT INFORMATION
  Report Type: 
  Country: None (occurrence: None)
  Receive Date: 20040325
  Receipt Date: 20040209
  Transmission Date: 20041129
  Serious: No
  Sender: FDA-Public Use
  Company Number: USA030638860

PATIENT
  Age: 57 Year
  Sex: Female
  Weight: 52 kg

DRUGS (13)
  1. FORTEO [Suspect]
     Indication: HIP ARTHROPLASTY
     Dosage: 20 UG/DAY
     Dates: start: 20030409, end: 20040201
  2. FORTEO [Suspect]
     Indication: PELVIC FRACTURE
     Dosage: 20 UG/DAY
     Dates: start: 20030409, end: 20040201
  3. PREDNISONE [Concomitant]
  4. ARAVA [Concomitant]
  5. MOBIC [Concomitant]
  6. FOLIC ACID [Concomitant]
  7. METHOTREXATE [Concomitant]
  8. OSCAL (CALCIUM CARBONATE) [Concomitant]
  9. FOSAMAX [Concomitant]
  10. LIPITOR [Concomitant]
  11. ELAVIL [Concomitant]
  12. VISINE (TETRYZOLINE HYDROCHLORIDE) [Concomitant]
  13. ROBAXIN [Concomitant]

REACTIONS (6)
  - ABNORMAL SENSATION IN EYE [None]
  - EYE DISORDER [None]
  - GLAUCOMA [None]
  - INCREASED APPETITE [None]
  - KERATOCONJUNCTIVITIS SICCA [None]
  - WEIGHT INCREASED [None]
